FAERS Safety Report 7663155 (Version 4)
Quarter: 2014Q2

REPORT INFORMATION
  Report Type: Report from Study
  Country: US (occurrence: US)
  Receive Date: 20101110
  Receipt Date: 20140630
  Transmission Date: 20141212
  Serious: Yes (Hospitalization)
  Sender: FDA-Public Use
  Company Number: US-ACTELION-A-NJ2010-41183

PATIENT
  Age: 56 Year
  Sex: Female
  Weight: 81.63 kg

DRUGS (4)
  1. TRACLEER [Suspect]
     Indication: PULMONARY ARTERIAL HYPERTENSION
     Dosage: 125 MG, BID
     Route: 048
  2. TRACLEER [Suspect]
     Dosage: 62.5 MG, BID
     Route: 048
     Dates: start: 20071031
  3. REVATIO [Concomitant]
     Dosage: 20 MG, TID
     Dates: start: 2005
  4. COUMADIN [Concomitant]
     Dosage: 8 MG DAILY EXCEPT FRIDAYS WHEN SHE TAKES 12 MG

REACTIONS (5)
  - Cellulitis [Recovering/Resolving]
  - Sepsis [Recovering/Resolving]
  - Lymphoedema [Recovering/Resolving]
  - Muscle fatigue [Unknown]
  - Pain in extremity [Unknown]
